FAERS Safety Report 4338601-1 (Version None)
Quarter: 2004Q2

REPORT INFORMATION
  Report Type: 
  Country: None (occurrence: None)
  Receive Date: 20040409
  Receipt Date: 20040401
  Transmission Date: 20050107
  Serious: Yes (Congenital Anomaly)
  Sender: FDA-Public Use
  Company Number: 03P-167-0239077-00

PATIENT
  Age: 2 Year
  Sex: Male

DRUGS (1)
  1. EPILIM (SODIUM VALPROATE) (SODIUM VALPROATE) (SODIUM VALPROATE) [Suspect]

REACTIONS (12)
  - CAESAREAN SECTION [None]
  - CONGENITAL ANOMALY [None]
  - DEVELOPMENTAL COORDINATION DISORDER [None]
  - DEVELOPMENTAL DELAY [None]
  - DRUG EXPOSURE DURING PREGNANCY [None]
  - ENURESIS [None]
  - EPILEPSY [None]
  - FACIAL DYSMORPHISM [None]
  - FOETAL VALPROATE SYNDROME [None]
  - GAIT DISTURBANCE [None]
  - MOTOR DYSFUNCTION [None]
  - SPEECH DISORDER DEVELOPMENTAL [None]
